FAERS Safety Report 9075946 (Version 1)
Quarter: 2013Q1

REPORT INFORMATION
  Report Type: Report from Study
  Country: US (occurrence: US)
  Receive Date: 20130129
  Receipt Date: 20130129
  Transmission Date: 20140127
  Serious: No
  Sender: FDA-Public Use
  Company Number: US-ABBOTT-12P-163-0944315-00

PATIENT
  Age: 49 Year
  Sex: Female

DRUGS (8)
  1. HUMIRA 40 MG/ 0.8 ML PRE-FILLED SYRINGE [Suspect]
     Indication: PSORIASIS
     Dates: start: 20120427
  2. HYDROXYZINE [Concomitant]
     Indication: ANXIETY
     Dosage: 50MG TWO TABLETS BY MOUTH AT BEDTIME
  3. HYDROXYZINE [Concomitant]
     Indication: PRURITUS
  4. CITALOPRAM [Concomitant]
     Indication: NERVOUSNESS
     Dosage: 20MG BY MOUTH DAILY
  5. CLOBETASOL [Concomitant]
     Indication: PRODUCT USED FOR UNKNOWN INDICATION
     Dosage: APPLIED TO AFFECTED AREAS AT BEDTIME
  6. LUXIQ FOAM [Concomitant]
     Indication: PSORIASIS
     Dosage: APPLIED TOPICALLY AT BEDTIME
  7. ALBUTEROL [Concomitant]
     Indication: ASTHMA
  8. LYRICA [Concomitant]
     Indication: BACK PAIN
     Dates: start: 201204

REACTIONS (2)
  - Dysmenorrhoea [Not Recovered/Not Resolved]
  - Menorrhagia [Not Recovered/Not Resolved]
